FAERS Safety Report 23422993 (Version 5)
Quarter: 2024Q3

REPORT INFORMATION
  Report Type: Spontaneous
  Country: US (occurrence: US)
  Receive Date: 20240119
  Receipt Date: 20240814
  Transmission Date: 20241017
  Serious: Yes (Death, Hospitalization, Other)
  Sender: FRESENIUS KABI
  Company Number: US-FreseniusKabi-FK202400726

PATIENT
  Age: 63 Year
  Sex: Male

DRUGS (5)
  1. FLUDARABINE [Suspect]
     Active Substance: FLUDARABINE PHOSPHATE
     Indication: Lymphodepletion
  2. FLUDARABINE [Suspect]
     Active Substance: FLUDARABINE PHOSPHATE
     Dosage: FORM OF ADMINISTRATION: INFUSION?ROA: INTRAVENOUS
     Dates: start: 20230809, end: 20230813
  3. FLUDARABINE [Suspect]
     Active Substance: FLUDARABINE PHOSPHATE
     Dosage: FORM OF ADMIN: INJECTION
  4. INVESTIGATIONAL PRODUCT [Suspect]
     Active Substance: INVESTIGATIONAL PRODUCT
     Indication: Hodgkin^s disease refractory
     Dosage: 80 X 10^6 VIABLE CAR-T CELLS, SINGLE?FORM OF ADMINISTRATION: SOLUTION?ROA: INTRAVENOUS
     Dates: start: 20230817, end: 20230817
  5. CYCLOPHOSPHAMIDE [Suspect]
     Active Substance: CYCLOPHOSPHAMIDE
     Indication: Lymphodepletion
     Dosage: 60 MG/KG/DAY?FORM OF ADMINISTRATION: INFUSION?ROA: IV
     Dates: start: 20230807, end: 20230808

REACTIONS (9)
  - Cystitis haemorrhagic [Fatal]
  - Bladder perforation [Fatal]
  - Ileus [Fatal]
  - Acute kidney injury [Not Recovered/Not Resolved]
  - Intestinal dilatation [Unknown]
  - Polyomavirus viraemia [Unknown]
  - Shock haemorrhagic [Unknown]
  - Kidney infection [Recovering/Resolving]
  - Mental status changes [Unknown]

NARRATIVE: CASE EVENT DATE: 20240105
